FAERS Safety Report 22645559 (Version 1)
Quarter: 2023Q2

REPORT INFORMATION
  Report Type: Spontaneous
  Country: JP (occurrence: JP)
  Receive Date: 20230627
  Receipt Date: 20230627
  Transmission Date: 20230722
  Serious: Yes (Other)
  Sender: FDA-Public Use
  Company Number: JP-PFIZER INC-202300230323

PATIENT
  Age: 6 Decade
  Sex: Female
  Weight: 42 kg

DRUGS (10)
  1. DOCETAXEL [Suspect]
     Active Substance: DOCETAXEL
     Dosage: UNK
     Dates: start: 202211
  2. CALCIUM CARBONATE [Suspect]
     Active Substance: CALCIUM CARBONATE
     Indication: Immune thrombocytopenia
     Dosage: 500 MG, 1X/DAY
     Route: 048
     Dates: start: 2020
  3. ELTROMBOPAG OLAMINE [Concomitant]
     Active Substance: ELTROMBOPAG OLAMINE
     Indication: Immune thrombocytopenia
     Dosage: 12.5 MG, 2X/DAY
     Route: 048
     Dates: start: 2020
  4. RABEPRAZOLE SODIUM [Concomitant]
     Active Substance: RABEPRAZOLE SODIUM
     Indication: Immune thrombocytopenia
     Dosage: 10 MG, 1X/DAY
     Route: 048
     Dates: start: 2020
  5. FERROUS CITRATE [Concomitant]
     Active Substance: FERROUS CITRATE
     Indication: Immune thrombocytopenia
     Dosage: 50 MG, 1X/DAY
     Route: 048
     Dates: start: 2020
  6. SULFAMETHOXAZOLE\TRIMETHOPRIM [Concomitant]
     Active Substance: SULFAMETHOXAZOLE\TRIMETHOPRIM
     Indication: Immune thrombocytopenia
     Dosage: 1 TABLET, 1X/DAY
     Route: 048
     Dates: start: 2020
  7. PREDNISOLONE ACETATE [Concomitant]
     Active Substance: PREDNISOLONE ACETATE
     Indication: Immune thrombocytopenia
     Dosage: 5 MG, 1X/DAY
     Route: 048
     Dates: start: 2020
  8. MIYA-BM [Concomitant]
     Active Substance: CLOSTRIDIUM BUTYRICUM SPORES STRAIN M-55
     Indication: Immune thrombocytopenia
     Dosage: 1 TABLET, 3X/DAY
     Route: 048
     Dates: start: 2020
  9. METHYLCOBALAMIN [Concomitant]
     Active Substance: METHYLCOBALAMIN
     Indication: Hypoaesthesia
     Dosage: 1 TABLET, 3X/DAY
     Route: 048
     Dates: start: 202104
  10. ELTROMBOPAG [Concomitant]
     Active Substance: ELTROMBOPAG
     Indication: Immune thrombocytopenia
     Route: 048

REACTIONS (4)
  - Renal impairment [Unknown]
  - Hepatic function abnormal [Unknown]
  - Rash [Unknown]
  - Hypoaesthesia [Unknown]
